FAERS Safety Report 6460270-5 (Version None)
Quarter: 2009Q4

REPORT INFORMATION
  Report Type: 
  Country: None (occurrence: None)
  Receive Date: 20091130
  Receipt Date: 20091117
  Transmission Date: 20100525
  Serious: Yes (Hospitalization)
  Sender: FDA-Public Use
  Company Number: PHHY2009FR51989

PATIENT
  Sex: Male

DRUGS (8)
  1. VOLTAREN [Suspect]
     Indication: BACK PAIN
     Dosage: 75 MG, BID
     Route: 048
     Dates: start: 20091009, end: 20091009
  2. ESOMEPRAZOLE [Suspect]
     Dosage: 20 MG, QD
     Dates: start: 20091009, end: 20091009
  3. KARDEGIC [Concomitant]
     Dosage: 160 MG, BID
  4. SKENAN [Concomitant]
     Dosage: UNK
     Route: 048
     Dates: start: 20090925, end: 20091009
  5. ACTISKENAN [Concomitant]
     Dosage: 10 MG, Q6H
     Route: 048
     Dates: start: 20091004, end: 20091009
  6. RIVOTRIL [Concomitant]
     Dosage: 10 DRP, QD
     Route: 048
     Dates: start: 20091005, end: 20091009
  7. PARACETAMOL [Concomitant]
     Dosage: 4 G, Q6H
     Route: 048
     Dates: start: 20091005
  8. LESCOL [Concomitant]
     Dosage: 20 MG, QD

REACTIONS (3)
  - ALTERED STATE OF CONSCIOUSNESS [None]
  - ANGIOEDEMA [None]
  - HYPOTENSION [None]
